FAERS Safety Report 18311796 (Version 1)
Quarter: 2020Q3

REPORT INFORMATION
  Report Type: Spontaneous
  Country: US (occurrence: US)
  Receive Date: 20200924
  Receipt Date: 20200924
  Transmission Date: 20201103
  Serious: No
  Sender: FDA-Public Use
  Company Number: None

PATIENT
  Age: 67 Year
  Sex: Male

DRUGS (1)
  1. APIXABAN (APIXABAN 5MG TAB) [Suspect]
     Active Substance: APIXABAN
     Route: 048

REACTIONS (6)
  - Vomiting [None]
  - Nausea [None]
  - Epistaxis [None]
  - Haemoptysis [None]
  - Melaena [None]
  - Acute kidney injury [None]

NARRATIVE: CASE EVENT DATE: 20181209
